FAERS Safety Report 8112070-8 (Version None)
Quarter: 2012Q1

REPORT INFORMATION
  Report Type: 
  Country: None (occurrence: None)
  Receive Date: 20120203
  Receipt Date: 20120126
  Transmission Date: 20120608
  Serious: Yes (Other)
  Sender: FDA-Public Use
  Company Number: US-PFIZER INC-2012004271

PATIENT
  Sex: Male
  Weight: 158.73 kg

DRUGS (10)
  1. WARFARIN SODIUM [Suspect]
     Dosage: UNK
  2. CODEINE [Concomitant]
     Indication: BACK PAIN
     Dosage: UNK
  3. VANCOMYCIN HCL [Suspect]
     Dosage: UNK
  4. MOTRIN [Suspect]
     Dosage: UNK
     Route: 048
  5. PERCOCET [Concomitant]
     Indication: SCIATICA
     Dosage: UNK
     Route: 048
  6. ACETAMINOPHEN [Concomitant]
     Indication: ARTHRITIS
  7. AMIODARONE [Concomitant]
     Indication: ATRIAL FIBRILLATION
     Dosage: UNK, DAILY
  8. GLUCOTROL XL [Suspect]
     Indication: DIABETES MELLITUS
     Dosage: 10 MG, 2X/DAY
     Route: 048
     Dates: start: 20000101
  9. AMIODARONE [Concomitant]
     Indication: ARRHYTHMIA
  10. ACETAMINOPHEN [Concomitant]
     Indication: BACK PAIN
     Dosage: UNK

REACTIONS (6)
  - DRUG INEFFECTIVE [None]
  - IMMOBILE [None]
  - BLOOD GLUCOSE INCREASED [None]
  - WEIGHT INCREASED [None]
  - RASH [None]
  - SKIN DISCOMFORT [None]
